FAERS Safety Report 5871813-4 (Version None)
Quarter: 2008Q3

REPORT INFORMATION
  Report Type: 
  Country: None (occurrence: None)
  Receive Date: 20080905
  Receipt Date: 20080904
  Transmission Date: 20090109
  Serious: Yes (Hospitalization)
  Sender: FDA-Public Use
  Company Number: BE-BOEHRINGER INGELHEIM GMBH, GERMANY-2008-DE-05271GD

PATIENT
  Age: 58 Year
  Sex: Female

DRUGS (4)
  1. ATROVENT [Suspect]
     Indication: ACUTE RESPIRATORY DISTRESS SYNDROME
     Route: 055
  2. VENTOLIN [Suspect]
     Indication: ACUTE RESPIRATORY DISTRESS SYNDROME
     Route: 055
  3. OMEPRAZOLE [Concomitant]
     Route: 048
  4. AKTON [Concomitant]

REACTIONS (1)
  - DRUG INEFFECTIVE [None]
